FAERS Safety Report 10881531 (Version 1)
Quarter: 2015Q1

REPORT INFORMATION
  Report Type: Report from Study
  Country: US (occurrence: US)
  Receive Date: 20150303
  Receipt Date: 20150303
  Transmission Date: 20150721
  Serious: Yes (Other)
  Sender: FDA-Public Use
  Company Number: US-AMGEN-USASL2015019421

PATIENT
  Age: 80 Year
  Sex: Female

DRUGS (1)
  1. ENBREL [Suspect]
     Active Substance: ETANERCEPT
     Indication: RHEUMATOID ARTHRITIS
     Dosage: 50 MG, ONCE EVERY 10 DAYS
     Route: 065
     Dates: start: 2013

REACTIONS (8)
  - Cystitis [Not Recovered/Not Resolved]
  - Urine odour abnormal [Not Recovered/Not Resolved]
  - Dysuria [Not Recovered/Not Resolved]
  - Influenza [Recovered/Resolved]
  - Asthma [Recovered/Resolved]
  - Bronchitis [Recovered/Resolved]
  - Bone pain [Recovered/Resolved]
  - Urinary retention [Not Recovered/Not Resolved]

NARRATIVE: CASE EVENT DATE: 2015
